FAERS Safety Report 9980899 (Version 1)
Quarter: 2014Q1

REPORT INFORMATION
  Report Type: Spontaneous
  Country: US (occurrence: US)
  Receive Date: 20140307
  Receipt Date: 20140307
  Transmission Date: 20141002
  Serious: No
  Sender: FDA-Public Use
  Company Number: US-GLAXOSMITHKLINE-A1020957A

PATIENT
  Age: 63 Year
  Sex: Female

DRUGS (3)
  1. REQUIP [Suspect]
     Indication: RESTLESS LEGS SYNDROME
     Dosage: .25MG PER DAY
     Route: 048
     Dates: start: 201302
  2. PROPANOLOL [Concomitant]
  3. KLONOPIN [Concomitant]

REACTIONS (6)
  - Somnolence [Not Recovered/Not Resolved]
  - Poor quality sleep [Unknown]
  - Insomnia [Unknown]
  - Local swelling [Unknown]
  - Eye swelling [Unknown]
  - Drug ineffective [Unknown]
